FAERS Safety Report 10952754 (Version 1)
Quarter: 2015Q1

REPORT INFORMATION
  Report Type: Spontaneous
  Country: US (occurrence: None)
  Receive Date: 20150324
  Receipt Date: 20150324
  Transmission Date: 20150721
  Serious: Yes (Life-Threatening, Hospitalization)
  Sender: FDA-Public Use
  Company Number: None

PATIENT
  Age: 6 Month
  Sex: Female
  Weight: 81.65 kg

DRUGS (1)
  1. COGENTIN [Suspect]
     Active Substance: BENZTROPINE MESYLATE
     Indication: BIPOLAR DISORDER
     Dosage: 1 TWICE DAILY, TAKEN BY MOUTH
     Route: 048
     Dates: start: 20130213, end: 20130413

REACTIONS (2)
  - Urine output decreased [None]
  - Bedridden [None]

NARRATIVE: CASE EVENT DATE: 20150313
